FAERS Safety Report 8926097 (Version 2)
Quarter: 2013Q1

REPORT INFORMATION
  Report Type: Spontaneous
  Country: BE (occurrence: BE)
  Receive Date: 20121126
  Receipt Date: 20130221
  Transmission Date: 20140127
  Serious: Yes (Hospitalization)
  Sender: FDA-Public Use
  Company Number: BE-009507513-1211BEL008919

PATIENT
  Age: 65 Year
  Sex: Male

DRUGS (16)
  1. NOXAFIL [Suspect]
     Indication: PROPHYLAXIS
     Dosage: 200 MG, TID
     Route: 048
     Dates: start: 20120330, end: 20120516
  2. ZOVIRAX [Concomitant]
     Indication: PROPHYLAXIS
     Dosage: 800 MG, QD
  3. MERONEM [Concomitant]
     Dosage: UNK
     Dates: start: 20120505, end: 20120519
  4. GLURENORM [Concomitant]
     Dosage: 30 MG, TID
  5. DENTYL [Concomitant]
     Dosage: AFTER MEALS AND BEFORE GOING TO BED
  6. STERIMAR [Concomitant]
     Indication: NASAL IRRIGATION
  7. VITAPANTOL [Concomitant]
     Route: 045
  8. PRED FORTE [Concomitant]
     Dosage: UNK
     Route: 047
     Dates: end: 20120508
  9. TEARS NATURALE [Concomitant]
     Dosage: UNK, QID
  10. NEUPOGEN [Concomitant]
     Dosage: UNK UNK, QD
     Route: 058
  11. DACTINOMYCIN (+) IFOSFAMIDE (+) VINCRISTINE SULFATE [Concomitant]
     Indication: HAEMATOLOGICAL MALIGNANCY
     Dosage: UNK
     Dates: start: 20120330, end: 20120405
  12. CYTOSAR [Concomitant]
     Indication: HAEMATOLOGICAL MALIGNANCY
     Dosage: UNK
     Dates: start: 20120426, end: 20120501
  13. CYTOSAR [Concomitant]
     Dosage: UNK
     Dates: start: 20120528, end: 20120604
  14. AMSIDINE [Concomitant]
     Indication: HAEMATOLOGICAL MALIGNANCY
     Dosage: UNK
     Dates: start: 20120426, end: 20120501
  15. CERUBIDINE [Concomitant]
     Indication: HAEMATOLOGICAL MALIGNANCY
     Dosage: UNK
     Dates: start: 20120528, end: 20120604
  16. PANTOMED (DEXPANTHENOL) [Concomitant]
     Dosage: 20 MG, QD

REACTIONS (2)
  - Fungal infection [Recovered/Resolved]
  - Neutropenia [Recovered/Resolved]
